FAERS Safety Report 5260807-8 (Version None)
Quarter: 2007Q1

REPORT INFORMATION
  Report Type: 
  Country: None (occurrence: None)
  Receive Date: 20070309
  Receipt Date: 20070226
  Transmission Date: 20070707
  Serious: Yes (Death, Hospitalization, Disabling, Other)
  Sender: FDA-Public Use
  Company Number: US-ELI_LILLY_AND_COMPANY-US200511002391

PATIENT
  Age: 58 Year
  Sex: Female

DRUGS (4)
  1. CYMBALTA [Suspect]
     Dosage: 30 MG, UNK
     Dates: start: 20051106, end: 20051101
  2. DYAZIDE [Concomitant]
     Dosage: 37.5 UNK, UNK
  3. AMBIEN [Concomitant]
     Dosage: 10 MG, UNK
  4. CORGARD                                 /UNK/ [Concomitant]
     Dosage: 80 MG, UNK

REACTIONS (7)
  - BRAIN STEM SYNDROME [None]
  - CONVULSION [None]
  - DEPRESSED LEVEL OF CONSCIOUSNESS [None]
  - DRUG INTERACTION [None]
  - HAEMORRHAGE [None]
  - HYPONATRAEMIA [None]
  - NERVOUS SYSTEM DISORDER [None]
